FAERS Safety Report 5368347-2 (Version None)
Quarter: 2007Q2

REPORT INFORMATION
  Report Type: 
  Country: None (occurrence: None)
  Receive Date: 20070625
  Receipt Date: 20070615
  Transmission Date: 20071010
  Serious: Yes (Hospitalization, Other)
  Sender: FDA-Public Use
  Company Number: US-AMGEN-STX229932

PATIENT
  Sex: Male

DRUGS (1)
  1. ENBREL [Suspect]
     Indication: PSORIATIC ARTHROPATHY
     Route: 058
     Dates: start: 20020601

REACTIONS (13)
  - AORTIC VALVE REPLACEMENT [None]
  - BACK PAIN [None]
  - CARDIAC ANEURYSM [None]
  - CORONARY ARTERY BYPASS [None]
  - CORONARY ARTERY DISEASE [None]
  - DECUBITUS ULCER [None]
  - DYSPNOEA [None]
  - INJECTION SITE PAIN [None]
  - MUSCULAR WEAKNESS [None]
  - MYOCARDIAL INFARCTION [None]
  - NEUROPATHY [None]
  - PSORIASIS [None]
  - TOE DEFORMITY [None]
